FAERS Safety Report 17672301 (Version 1)
Quarter: 2020Q2

REPORT INFORMATION
  Report Type: Spontaneous
  Country: US (occurrence: US)
  Receive Date: 20200415
  Receipt Date: 20200415
  Transmission Date: 20200713
  Serious: No
  Sender: FDA-Public Use
  Company Number: US-PFIZER INC-2020155441

PATIENT
  Age: 65 Year
  Sex: Female

DRUGS (7)
  1. SIMVASTATIN. [Concomitant]
     Active Substance: SIMVASTATIN
     Dosage: 40 MG, UNK
  2. GINGER [ZINGIBER OFFICINALE] [Concomitant]
     Active Substance: GINGER
     Dosage: 250 MG, UNK
  3. IBRANCE [Suspect]
     Active Substance: PALBOCICLIB
     Indication: BREAST CANCER FEMALE
     Dosage: 75 MG, CYCLIC (1 DAILY FOR 14 DAYS)
     Route: 048
     Dates: start: 2016
  4. FASLODEX [Concomitant]
     Active Substance: FULVESTRANT
     Dosage: UNK, (FASLODEX 250 MG/5 ML SYRINGE)
  5. PROLIA [Concomitant]
     Active Substance: DENOSUMAB
     Dosage: 60 MG/ML, UNK, (60 MG/ML SYRINGE)
  6. RANITIDINE. [Concomitant]
     Active Substance: RANITIDINE
     Dosage: UNK POWDER
  7. TURMERIC CURCUMIN [CURCUMA LONGA] [Concomitant]
     Dosage: 1053 MG, UNK

REACTIONS (4)
  - Pallor [Unknown]
  - Poor quality sleep [Unknown]
  - Dyspepsia [Unknown]
  - Fatigue [Unknown]
